FAERS Safety Report 7105052-6 (Version None)
Quarter: 2010Q4

REPORT INFORMATION
  Report Type: 
  Country: None (occurrence: None)
  Receive Date: 20101116
  Receipt Date: 20080611
  Transmission Date: 20110411
  Serious: No
  Sender: FDA-Public Use
  Company Number: US-KINGPHARMUSA00001-K200800780

PATIENT
  Sex: Female

DRUGS (1)
  1. VIROPTIC SOLUTION [Suspect]

REACTIONS (2)
  - CORNEAL DISORDER [None]
  - DRY EYE [None]
